FAERS Safety Report 22356707 (Version 1)
Quarter: 2023Q2

REPORT INFORMATION
  Report Type: Spontaneous
  Country: US (occurrence: US)
  Receive Date: 20230523
  Receipt Date: 20230523
  Transmission Date: 20230721
  Serious: Yes (Other)
  Sender: FDA-Public Use
  Company Number: US-PURDUE-USA-2023-0302336

PATIENT
  Sex: Female

DRUGS (1)
  1. COLACE [Suspect]
     Active Substance: DOCUSATE SODIUM
     Indication: Laxative supportive care
     Dosage: UNK
     Route: 048

REACTIONS (5)
  - Foreign body in throat [Unknown]
  - Regurgitation [Unknown]
  - Throat irritation [Unknown]
  - Expired product administered [Unknown]
  - Product physical issue [Unknown]
